FAERS Safety Report 19690175 (Version 1)
Quarter: 2021Q3

REPORT INFORMATION
  Report Type: Spontaneous
  Country: US (occurrence: US)
  Receive Date: 20210812
  Receipt Date: 20210812
  Transmission Date: 20211014
  Serious: No
  Sender: FDA-Public Use
  Company Number: US-ELI_LILLY_AND_COMPANY-US202108004700

PATIENT
  Sex: Male

DRUGS (4)
  1. NOVOLOG [Concomitant]
     Active Substance: INSULIN ASPART
     Dosage: 10 U, TID(SOMETIMES)
  2. BASAGLAR [Suspect]
     Active Substance: INSULIN GLARGINE
     Dosage: 26 U, DAILY(AT NIGHT WHEN BG OVER 100)
     Route: 058
     Dates: start: 202006
  3. BASAGLAR [Suspect]
     Active Substance: INSULIN GLARGINE
     Indication: TYPE 2 DIABETES MELLITUS
     Dosage: 26 U, DAILY(AT NIGHT WHEN BG UNDER 100)
     Route: 058
     Dates: start: 202006
  4. NOVOLOG [Concomitant]
     Active Substance: INSULIN ASPART
     Indication: TYPE 2 DIABETES MELLITUS
     Dosage: 14 U, TID

REACTIONS (6)
  - Blood glucose increased [Unknown]
  - Visual impairment [Unknown]
  - Overweight [Unknown]
  - Vision blurred [Unknown]
  - Confusional state [Unknown]
  - Injection site pain [Unknown]
